FAERS Safety Report 7790448-X (Version None)
Quarter: 2011Q3

REPORT INFORMATION
  Report Type: 
  Country: None (occurrence: None)
  Receive Date: 20110930
  Receipt Date: 20110923
  Transmission Date: 20111222
  Serious: Yes (Other)
  Sender: FDA-Public Use
  Company Number: US-JNJFOC-20110911791

PATIENT
  Sex: Female
  Weight: 89.81 kg

DRUGS (6)
  1. STELARA [Suspect]
     Indication: PSORIATIC ARTHROPATHY
     Route: 058
     Dates: start: 20110301
  2. OXYCONTIN [Concomitant]
     Indication: PAIN
     Route: 048
     Dates: start: 20060101
  3. COREG [Concomitant]
     Indication: HYPERTENSION
     Route: 048
     Dates: start: 20060101
  4. LISINOPRIL AND HYDROCHLOROTHIAZIDE [Concomitant]
     Indication: HYPERTENSION
     Route: 048
     Dates: start: 20060101
  5. PERCOCET [Concomitant]
     Indication: PAIN
     Route: 048
     Dates: start: 20050101
  6. CYMBALTA [Concomitant]
     Indication: ANXIETY
     Route: 048
     Dates: start: 20080101

REACTIONS (5)
  - HYPERTONIA [None]
  - DIABETES MELLITUS [None]
  - OFF LABEL USE [None]
  - WEIGHT INCREASED [None]
  - THERAPEUTIC RESPONSE DECREASED [None]
